FAERS Safety Report 8472388-6 (Version None)
Quarter: 2012Q2

REPORT INFORMATION
  Report Type: 
  Country: None (occurrence: None)
  Receive Date: 20120627
  Receipt Date: 20120615
  Transmission Date: 20120825
  Serious: Yes (Hospitalization)
  Sender: FDA-Public Use
  Company Number: US-ACTELION-A-NJ2011-43988

PATIENT

DRUGS (9)
  1. CLARITIN [Concomitant]
  2. TRACLEER [Suspect]
     Indication: PULMONARY ARTERIAL HYPERTENSION
     Dosage: 125 MG, BID
     Route: 048
  3. VIAGRA [Concomitant]
  4. TRACLEER [Suspect]
     Dosage: UNK
     Route: 048
     Dates: start: 20060523
  5. LASIX [Concomitant]
  6. OXYGEN [Concomitant]
  7. ALDACTONE [Concomitant]
  8. ADCIRCA [Concomitant]
  9. ALBUTEROL [Concomitant]

REACTIONS (5)
  - CARDIAC DISORDER [None]
  - PNEUMONIA [None]
  - GASTROINTESTINAL DISORDER [None]
  - OXYGEN SATURATION ABNORMAL [None]
  - DRUG DOSE OMISSION [None]
